FAERS Safety Report 22943847 (Version 2)
Quarter: 2023Q4

REPORT INFORMATION
  Report Type: Spontaneous
  Country: NL (occurrence: NL)
  Receive Date: 20230914
  Receipt Date: 20231002
  Transmission Date: 20240110
  Serious: Yes (Hospitalization, Other)
  Sender: FDA-Public Use
  Company Number: NL-GILEAD-2023-0641980

PATIENT
  Age: 61 Year
  Sex: Male
  Weight: 90 kg

DRUGS (50)
  1. RITUXIMAB [Suspect]
     Active Substance: RITUXIMAB
     Indication: Mantle cell lymphoma
     Dosage: UNK
     Dates: start: 20220502, end: 202209
  2. CYTARABINE [Suspect]
     Active Substance: CYTARABINE
     Dosage: UNK
     Dates: start: 20220502, end: 202209
  3. CYCLOPHOSPHAMIDE [Suspect]
     Active Substance: CYCLOPHOSPHAMIDE
     Indication: Bone marrow conditioning regimen
     Dosage: UNK
     Dates: start: 20220502, end: 202209
  4. CYCLOPHOSPHAMIDE [Suspect]
     Active Substance: CYCLOPHOSPHAMIDE
     Indication: Mantle cell lymphoma
     Dosage: 1080
     Dates: start: 20221117, end: 20221117
  5. CYCLOPHOSPHAMIDE [Suspect]
     Active Substance: CYCLOPHOSPHAMIDE
     Dosage: 1080
     Dates: start: 20221118, end: 20221118
  6. CYCLOPHOSPHAMIDE [Suspect]
     Active Substance: CYCLOPHOSPHAMIDE
     Dosage: 1080
     Dates: start: 20221119, end: 20221119
  7. DOXORUBICIN HYDROCHLORIDE [Suspect]
     Active Substance: DOXORUBICIN HYDROCHLORIDE
     Indication: Mantle cell lymphoma
     Dosage: UNK
     Dates: start: 20220502, end: 202209
  8. VINCRISTINE SULFATE [Suspect]
     Active Substance: VINCRISTINE SULFATE
     Indication: Mantle cell lymphoma
     Dosage: UNK
     Dates: start: 20220502, end: 202209
  9. PREDNISONE [Suspect]
     Active Substance: PREDNISONE
     Indication: Mantle cell lymphoma
     Dosage: UNK
     Dates: start: 20220502, end: 202209
  10. CISPLATIN [Suspect]
     Active Substance: CISPLATIN
     Indication: Mantle cell lymphoma
     Dosage: UNK
     Dates: start: 20220502, end: 202209
  11. DEXAMETHASONE [Suspect]
     Active Substance: DEXAMETHASONE
     Indication: Mantle cell lymphoma
     Dosage: UNK
     Dates: start: 20220502, end: 202209
  12. DEXAMETHASONE [Suspect]
     Active Substance: DEXAMETHASONE
     Dosage: 40
     Dates: start: 20221027, end: 20221030
  13. FLUDARABINE [Suspect]
     Active Substance: FLUDARABINE PHOSPHATE
     Indication: Bone marrow conditioning regimen
     Dosage: 65
     Dates: start: 20221117, end: 20221117
  14. FLUDARABINE [Suspect]
     Active Substance: FLUDARABINE PHOSPHATE
     Dosage: 65
     Dates: start: 20221118, end: 20221118
  15. FLUDARABINE [Suspect]
     Active Substance: FLUDARABINE PHOSPHATE
     Dosage: 65
     Dates: start: 20221119, end: 20221119
  16. BREXUCABTAGENE AUTOLEUCEL [Suspect]
     Active Substance: BREXUCABTAGENE AUTOLEUCEL
     Indication: Mantle cell lymphoma
     Dosage: 68 (UNITS NOT PROVIDED)
     Route: 042
     Dates: start: 20221122, end: 20221122
  17. MESNA [Suspect]
     Active Substance: MESNA
     Indication: Prophylaxis
     Dosage: 400
     Dates: start: 20221117, end: 20221117
  18. MESNA [Suspect]
     Active Substance: MESNA
     Dosage: 400
     Dates: start: 20221117, end: 20221117
  19. MESNA [Suspect]
     Active Substance: MESNA
     Dosage: 400
     Dates: start: 20221118, end: 20221118
  20. MESNA [Suspect]
     Active Substance: MESNA
     Dosage: 400
     Dates: start: 20221118, end: 20221118
  21. MESNA [Suspect]
     Active Substance: MESNA
     Dosage: 400
     Dates: start: 20221118, end: 20221118
  22. MESNA [Suspect]
     Active Substance: MESNA
     Dosage: 400
     Dates: start: 20221119, end: 20221119
  23. MESNA [Suspect]
     Active Substance: MESNA
     Dosage: 400
     Dates: start: 20221119, end: 20221119
  24. MESNA [Suspect]
     Active Substance: MESNA
     Dosage: 400
     Dates: start: 20221119, end: 20221119
  25. MESNA [Suspect]
     Active Substance: MESNA
     Dosage: 400
     Dates: start: 20221120, end: 20221120
  26. AZITHROMYCIN [Concomitant]
     Active Substance: AZITHROMYCIN
     Dosage: 500,MG,DAILY
     Route: 048
     Dates: start: 20230823, end: 20230823
  27. AZITHROMYCIN [Concomitant]
     Active Substance: AZITHROMYCIN
     Dosage: 250 MG, DAILY
     Route: 048
     Dates: start: 20230824, end: 20230827
  28. AZITHROMYCIN [Concomitant]
     Active Substance: AZITHROMYCIN
     Dosage: 250,MG,EVERY OTHER DAY
     Route: 048
     Dates: start: 20230828, end: 20230906
  29. FLUTICASONE [Concomitant]
     Active Substance: FLUTICASONE
     Dosage: 1, DAILY
     Route: 045
     Dates: start: 20230705, end: 20230710
  30. FLUTICASONE [Concomitant]
     Active Substance: FLUTICASONE
     Dosage: 0.5, 2X/DAY
     Route: 045
     Dates: start: 20230711
  31. FLUTICASONE [Concomitant]
     Active Substance: FLUTICASONE
     Dosage: 2, 2X/DAY
     Route: 045
     Dates: start: 20230821
  32. TEMAZEPAM [Concomitant]
     Active Substance: TEMAZEPAM
     Dosage: 10 MG, DAILY
     Route: 048
     Dates: start: 20230705
  33. VALACYCLOVIR HYDROCHLORIDE [Concomitant]
     Active Substance: VALACYCLOVIR HYDROCHLORIDE
     Dosage: 500 MG, 2X/DAY
     Route: 048
     Dates: start: 20230201
  34. LIDOCAINE [Concomitant]
     Active Substance: LIDOCAINE
     Dosage: 20 MG, 2X/DAY
     Route: 061
     Dates: start: 20221218, end: 20230627
  35. METOCLOPRAMIDE [Concomitant]
     Active Substance: METOCLOPRAMIDE
     Dosage: 10 MG, 3X/DAY
     Route: 048
     Dates: start: 20230118, end: 20230627
  36. CODEINE [Concomitant]
     Active Substance: CODEINE
     Dosage: 10 MG, DAILY
     Route: 048
     Dates: start: 20230524
  37. CODEINE [Concomitant]
     Active Substance: CODEINE
     Dosage: 10 MG, DAILY
     Route: 048
     Dates: start: 20230822
  38. FUROSEMIDE [Concomitant]
     Active Substance: FUROSEMIDE
     Dosage: 40 MG, DAILY
     Route: 048
     Dates: start: 20221212
  39. SULFAMETHOXAZOLE\TRIMETHOPRIM [Concomitant]
     Active Substance: SULFAMETHOXAZOLE\TRIMETHOPRIM
     Dosage: 480 MG, DAILY
     Route: 048
     Dates: start: 20221122
  40. FILGRASTIM [Concomitant]
     Active Substance: FILGRASTIM
     Dosage: 0.5 ML OTHER
     Route: 058
     Dates: start: 20230524, end: 20230816
  41. ACETAMINOPHEN [Concomitant]
     Active Substance: ACETAMINOPHEN
     Dosage: 1000,MG, 4 TIMES DAILY
     Route: 048
     Dates: start: 20230907
  42. CEFTRIAXONE [Concomitant]
     Active Substance: CEFTRIAXONE
     Dosage: 2000MG DAILY
     Route: 042
     Dates: start: 20230906
  43. XYLOMETAZOLINE HYDROCHLORIDE [Concomitant]
     Active Substance: XYLOMETAZOLINE HYDROCHLORIDE
     Dosage: 6.5MDGDAILY
     Route: 045
     Dates: start: 20230828
  44. SODIUM CHLORIDE [Concomitant]
     Active Substance: SODIUM CHLORIDE
     Dosage: 500,ML,CONTINUOUS
     Route: 048
     Dates: start: 20230906
  45. AMOXICILLIN [Concomitant]
     Active Substance: AMOXICILLIN
     Dosage: 625,MG,THREE TIMES DAILY
     Route: 048
     Dates: start: 20230809, end: 20230816
  46. AMOXICILLIN [Concomitant]
     Active Substance: AMOXICILLIN
     Dosage: 625 MG, 3 TIMES DAILY
     Route: 048
     Dates: start: 20230614, end: 20230627
  47. AMOXICILLIN [Concomitant]
     Active Substance: AMOXICILLIN
     Dosage: 625 MG, 3 TIMES DAILY
     Route: 048
     Dates: start: 20230718, end: 20230802
  48. PREDNISOLONE ACETATE [Concomitant]
     Active Substance: PREDNISOLONE ACETATE
     Dosage: 30 MG, DAILY
     Dates: start: 20230809, end: 20230816
  49. DARBEPOETIN ALFA [Concomitant]
     Active Substance: DARBEPOETIN ALFA
     Dosage: 500,UG,OTHER
     Route: 058
     Dates: start: 20230719
  50. NADROPARIN [Concomitant]
     Active Substance: NADROPARIN
     Dosage: 2850,IU,DAILY
     Route: 058
     Dates: start: 20230907

REACTIONS (8)
  - Pneumonia [Recovered/Resolved]
  - Myelodysplastic syndrome [Not Recovered/Not Resolved]
  - Nasopharyngitis [Not Recovered/Not Resolved]
  - Arthralgia [Not Recovered/Not Resolved]
  - Headache [Not Recovered/Not Resolved]
  - Pyrexia [Not Recovered/Not Resolved]
  - Leukapheresis [Recovered/Resolved]
  - Malaise [Not Recovered/Not Resolved]

NARRATIVE: CASE EVENT DATE: 20220901
